FAERS Safety Report 10675005 (Version 3)
Quarter: 2015Q1

REPORT INFORMATION
  Report Type: Spontaneous
  Country: US (occurrence: US)
  Receive Date: 20141224
  Receipt Date: 20150130
  Transmission Date: 20150720
  Serious: Yes (Life-Threatening, Other)
  Sender: FDA-Public Use
  Company Number: US-JNJFOC-20141213791

PATIENT
  Age: 58 Year
  Sex: Male
  Weight: 100.7 kg

DRUGS (3)
  1. NUCYNTA ER [Suspect]
     Active Substance: TAPENTADOL HYDROCHLORIDE
     Indication: PAIN
     Dosage: 150 MG, EVERY 12 HOURS
     Route: 048
     Dates: start: 20141106, end: 20141209
  2. NUCYNTA ER [Suspect]
     Active Substance: TAPENTADOL HYDROCHLORIDE
     Indication: PAIN
     Dosage: 200 MG TWO TIMES A DAY
     Route: 048
     Dates: start: 20141209, end: 20141217
  3. LYRICA [Suspect]
     Active Substance: PREGABALIN
     Indication: NEUROPATHY PERIPHERAL
     Dosage: 150 MG THREE TIMES A DAY
     Route: 065
     Dates: start: 20140801

REACTIONS (3)
  - Pain [Unknown]
  - Loss of consciousness [Unknown]
  - Psychotic disorder [Recovered/Resolved]

NARRATIVE: CASE EVENT DATE: 201412
